FAERS Safety Report 7318738 (Version 14)
Quarter: 2015Q2

REPORT INFORMATION
  Report Type: Report from Study
  Country: RU (occurrence: RU)
  Receive Date: 20100312
  Receipt Date: 20150612
  Transmission Date: 20150821
  Serious: Yes (Death, Life-Threatening, Hospitalization)
  Sender: FDA-Public Use
  Company Number: PHHO2010RU03694

PATIENT
  Age: 67 Year
  Sex: Male
  Weight: 79.9 kg

DRUGS (24)
  1. NITROGLYCERINE [Suspect]
     Active Substance: NITROGLYCERIN
     Indication: CHEST PAIN
     Dosage: 1 DF (TABLET)
     Route: 060
     Dates: start: 20100306
  2. BLINDED ENALAPRIL [Suspect]
     Active Substance: ENALAPRIL
     Indication: CARDIAC FAILURE
     Dosage: CODE NOT BROKEN
     Route: 048
     Dates: start: 20091126
  3. BLINDED NO TREATMENT RECEIVED [Suspect]
     Active Substance: UNSPECIFIED INGREDIENT
     Dosage: CODE NOT BROKEN
     Route: 048
     Dates: start: 20100303, end: 20100306
  4. BLINDED ALISKIREN [Suspect]
     Active Substance: ALISKIREN
     Dosage: CODE NOT BROKEN
     Route: 048
     Dates: start: 20100310, end: 20130116
  5. BLINDED ENALAPRIL [Suspect]
     Active Substance: ENALAPRIL
     Dosage: CODE NOT BROKEN
     Route: 048
     Dates: start: 20100310, end: 20130116
  6. BLINDED ENALAPRIL [Suspect]
     Active Substance: ENALAPRIL
     Dosage: CODE NOT BROKEN
     Route: 048
     Dates: start: 20100303, end: 20100306
  7. BLINDED ALISKIREN [Suspect]
     Active Substance: ALISKIREN
     Dosage: NO TREATMENT
     Route: 048
     Dates: start: 20100307, end: 20100309
  8. BLINDED NO TREATMENT RECEIVED [Suspect]
     Active Substance: UNSPECIFIED INGREDIENT
     Dosage: CODE NOT BROKEN
     Route: 048
     Dates: start: 20100310, end: 20130116
  9. THROMBO ASS [Concomitant]
     Active Substance: ASPIRIN
     Indication: ANGINA PECTORIS
  10. BLINDED NO TREATMENT RECEIVED [Suspect]
     Active Substance: UNSPECIFIED INGREDIENT
     Dosage: NO TREATMENT
     Route: 048
     Dates: start: 20100307, end: 20100309
  11. BLINDED ALISKIREN [Suspect]
     Active Substance: ALISKIREN
     Dosage: CODE NOT BROKEN
     Route: 048
     Dates: start: 20130129
  12. BLINDED NO TREATMENT RECEIVED [Suspect]
     Active Substance: UNSPECIFIED INGREDIENT
     Dosage: CODE NOT BROKEN
     Route: 048
     Dates: start: 20130129
  13. METFORMIN [Concomitant]
     Active Substance: METFORMIN HYDROCHLORIDE
     Indication: TYPE 2 DIABETES MELLITUS
     Dosage: 500 MG, QD
     Route: 048
     Dates: start: 20080320
  14. ATORVASTATIN [Concomitant]
     Active Substance: ATORVASTATIN
     Indication: ANGINA PECTORIS
     Dosage: 20 MG, QD
     Route: 048
     Dates: start: 20111109
  15. BLINDED ALISKIREN [Suspect]
     Active Substance: ALISKIREN
     Indication: CARDIAC FAILURE
     Dosage: CODE NOT BROKEN
     Route: 048
     Dates: start: 20091126
  16. BLINDED NO TREATMENT RECEIVED [Suspect]
     Active Substance: UNSPECIFIED INGREDIENT
     Indication: CARDIAC FAILURE
     Dosage: CODE NOT BROKEN
     Route: 048
     Dates: start: 20091126
  17. BLINDED ALISKIREN [Suspect]
     Active Substance: ALISKIREN
     Dosage: CODE NOT BROKEN
     Route: 048
     Dates: start: 20100303, end: 20100306
  18. ISOSORBIDE DINITRATE. [Suspect]
     Active Substance: ISOSORBIDE DINITRATE
     Indication: ANGINA PECTORIS
     Route: 065
  19. THROMBO ASS [Concomitant]
     Active Substance: ASPIRIN
     Indication: MYOCARDIAL INFARCTION
     Dosage: 100 MG, QD
     Route: 048
     Dates: start: 20020814
  20. BLINDED ENALAPRIL [Suspect]
     Active Substance: ENALAPRIL
     Dosage: NO TREATMENT
     Route: 048
     Dates: start: 20100307, end: 20100309
  21. BLINDED ENALAPRIL [Suspect]
     Active Substance: ENALAPRIL
     Dosage: CODE NOT BROKEN
     Route: 048
     Dates: start: 20130129
  22. ALISKIREN [Suspect]
     Active Substance: ALISKIREN
     Indication: CARDIAC FAILURE
     Dosage: RUN IN PHASE
     Route: 048
     Dates: start: 20091111
  23. COMPARATOR ENALAPRIL [Suspect]
     Active Substance: ENALAPRIL
     Indication: CARDIAC FAILURE
     Dosage: RUN IN PHASE
     Route: 048
     Dates: start: 20091008
  24. SIMVASTATIN. [Concomitant]
     Active Substance: SIMVASTATIN
     Indication: ANGINA PECTORIS
     Dosage: 20 MG, QD
     Route: 048
     Dates: start: 20090413

REACTIONS (16)
  - Right ventricular failure [Recovered/Resolved]
  - Loss of consciousness [Recovered/Resolved]
  - Hepatic cancer [Fatal]
  - Myocardial ischaemia [Recovered/Resolved]
  - Cardiac failure chronic [Recovered/Resolved]
  - Pulmonary congestion [Recovered/Resolved]
  - Disease progression [Recovered/Resolved]
  - Chest pain [Recovered/Resolved]
  - Vertigo [Recovered/Resolved]
  - Dizziness [Recovered/Resolved]
  - Ventricular extrasystoles [Recovered/Resolved]
  - Cold sweat [Recovered/Resolved]
  - Hypotension [Recovered/Resolved]
  - Angina unstable [Recovered/Resolved]
  - Angina unstable [Recovered/Resolved]
  - Chest pain [Recovered/Resolved]

NARRATIVE: CASE EVENT DATE: 20100306
